FAERS Safety Report 5024676-3 (Version None)
Quarter: 2006Q2

REPORT INFORMATION
  Report Type: 
  Country: None (occurrence: None)
  Receive Date: 20060613
  Receipt Date: 20060530
  Transmission Date: 20061013
  Serious: Yes (Hospitalization)
  Sender: FDA-Public Use
  Company Number: US-AMGEN-US181232

PATIENT
  Sex: Female

DRUGS (8)
  1. SENSIPAR [Suspect]
     Indication: HYPERPARATHYROIDISM SECONDARY
     Dates: start: 20050101
  2. NEPHROCAPS [Suspect]
  3. TOPROL-XL [Suspect]
  4. SYNTHROID [Suspect]
  5. SYNTHROID [Suspect]
  6. RENAGEL [Suspect]
  7. DILANTIN [Suspect]
  8. KEPPRA [Suspect]

REACTIONS (2)
  - CEREBROVASCULAR ACCIDENT [None]
  - CONVULSION [None]
